FAERS Safety Report 15283757 (Version 2)
Quarter: 2018Q4

REPORT INFORMATION
  Report Type: Spontaneous
  Country: NL (occurrence: NL)
  Receive Date: 20180816
  Receipt Date: 20180817
  Transmission Date: 20190204
  Serious: Yes (Hospitalization)
  Sender: FDA-Public Use
  Company Number: NL-TEVA-2018-NL-941988

PATIENT
  Age: 66 Year
  Sex: Female
  Weight: 73 kg

DRUGS (1)
  1. VERAPAMIL RETARD 240MG. [Suspect]
     Active Substance: VERAPAMIL HYDROCHLORIDE
     Indication: CHEST PAIN
     Dosage: 240 MILLIGRAM DAILY; 1XPERDAG  1 TABLET
     Route: 065
     Dates: start: 20180612

REACTIONS (1)
  - Transient ischaemic attack [Recovered/Resolved with Sequelae]

NARRATIVE: CASE EVENT DATE: 20180616
